FAERS Safety Report 10186694 (Version 1)
Quarter: 2014Q2

REPORT INFORMATION
  Report Type: Spontaneous
  Country: US (occurrence: US)
  Receive Date: 20140521
  Receipt Date: 20140521
  Transmission Date: 20141212
  Serious: Yes (Other)
  Sender: FDA-Public Use
  Company Number: US-MYLANLABS-2014S1011095

PATIENT
  Age: 3 Year
  Sex: Male

DRUGS (2)
  1. CLONAZEPAM [Suspect]
     Route: 065
  2. VIGABATRIN [Suspect]
     Dosage: RESTARTED AFTER EXHAUSTING SUPPLY
     Route: 065

REACTIONS (1)
  - Dyskinesia [Recovering/Resolving]
